FAERS Safety Report 5130455-9 (Version None)
Quarter: 2006Q4

REPORT INFORMATION
  Report Type: 
  Country: None (occurrence: None)
  Receive Date: 20061013
  Receipt Date: 20061002
  Transmission Date: 20070319
  Serious: Yes (Other)
  Sender: FDA-Public Use
  Company Number: 2006122265

PATIENT
  Age: 80 Year
  Sex: Female

DRUGS (1)
  1. CELEBREX [Suspect]
     Dates: start: 20050101

REACTIONS (6)
  - CARDIOVASCULAR DISORDER [None]
  - DIZZINESS [None]
  - DYSPNOEA [None]
  - MYOCARDIAL INFARCTION [None]
  - OVARIAN CANCER [None]
  - SKIN BURNING SENSATION [None]
